FAERS Safety Report 5279428-6 (Version None)
Quarter: 2007Q1

REPORT INFORMATION
  Report Type: 
  Country: None (occurrence: None)
  Receive Date: 20070328
  Receipt Date: 20070314
  Transmission Date: 20070707
  Serious: Yes (Other)
  Sender: FDA-Public Use
  Company Number: US-ELI_LILLY_AND_COMPANY-US200703002857

PATIENT
  Age: 10 Year
  Sex: Male

DRUGS (3)
  1. STRATTERA [Suspect]
  2. ZOLOFT [Concomitant]
  3. RISPERDAL [Concomitant]

REACTIONS (3)
  - ACCIDENT [None]
  - DYSPHAGIA [None]
  - TRISMUS [None]
